FAERS Safety Report 8604523-0 (Version None)
Quarter: 2012Q3

REPORT INFORMATION
  Report Type: 
  Country: None (occurrence: None)
  Receive Date: 20120820
  Receipt Date: 20120808
  Transmission Date: 20120928
  Serious: Yes (Other)
  Sender: FDA-Public Use
  Company Number: GB-JNJFOC-20120807820

PATIENT
  Sex: Female

DRUGS (5)
  1. TAPENTADOL HYDROCHLORIDE [Suspect]
     Indication: NEURALGIA
     Route: 048
     Dates: start: 20120701, end: 20120709
  2. NAPROXEN [Concomitant]
     Indication: PAIN
     Dosage: 250-500 MG
     Route: 048
  3. TIBOLONE [Concomitant]
     Indication: MENOPAUSE
     Dosage: 2-5 MG
     Route: 048
  4. ACETAMINOPHEN AND CODEINE PHOSPHATE [Concomitant]
     Indication: PAIN
     Route: 048
  5. AMITRIPTYLINE HCL [Concomitant]
     Indication: PAIN
     Dosage: 25-50 MG AT NIGHT
     Route: 048

REACTIONS (3)
  - VISUAL ACUITY REDUCED [None]
  - VISION BLURRED [None]
  - HEADACHE [None]
